FAERS Safety Report 9331621 (Version 4)
Quarter: 2013Q3

REPORT INFORMATION
  Report Type: Spontaneous
  Country: US (occurrence: US)
  Receive Date: 20130605
  Receipt Date: 20130719
  Transmission Date: 20140515
  Serious: Yes (Hospitalization, Other)
  Sender: FDA-Public Use
  Company Number: US-ABBOTT-13P-163-1097831-00

PATIENT
  Age: 51 Year
  Sex: Female
  Weight: 45.85 kg

DRUGS (13)
  1. HUMIRA [Suspect]
     Indication: PUSTULAR PSORIASIS
     Route: 058
     Dates: start: 201106, end: 20120206
  2. HUMIRA [Suspect]
     Indication: PUSTULAR PSORIASIS
     Dates: start: 201212
  3. DIVALPROEX [Concomitant]
     Indication: BIPOLAR DISORDER
  4. MARZIPAN [Concomitant]
     Indication: BIPOLAR DISORDER
  5. SEROQUEL [Concomitant]
     Indication: BIPOLAR DISORDER
  6. TRAZODONE [Concomitant]
     Indication: BIPOLAR DISORDER
  7. VITAMIN D3 [Concomitant]
     Indication: PRODUCT USED FOR UNKNOWN INDICATION
  8. LEVOTHYROXINE [Concomitant]
     Indication: THYROID DISORDER
  9. SIMVASTATIN [Concomitant]
     Indication: BLOOD CHOLESTEROL
  10. ESTRADIOL [Concomitant]
     Indication: HORMONE REPLACEMENT THERAPY
  11. LITHIUM [Concomitant]
     Indication: PRODUCT USED FOR UNKNOWN INDICATION
  12. FLAGYL [Concomitant]
     Indication: PRODUCT USED FOR UNKNOWN INDICATION
  13. DEPAKOTE [Concomitant]
     Indication: PRODUCT USED FOR UNKNOWN INDICATION

REACTIONS (11)
  - Rotator cuff syndrome [Recovered/Resolved]
  - Antiphospholipid antibodies positive [Unknown]
  - Off label use [Not Recovered/Not Resolved]
  - Pustular psoriasis [Not Recovered/Not Resolved]
  - Injection site haemorrhage [Not Recovered/Not Resolved]
  - Injection site pain [Not Recovered/Not Resolved]
  - Injection site pain [Not Recovered/Not Resolved]
  - Incorrect dose administered [Unknown]
  - Incorrect dose administered [Unknown]
  - Antinuclear antibody positive [Unknown]
  - Double stranded DNA antibody positive [Unknown]
